FAERS Safety Report 6626073-3 (Version None)
Quarter: 2010Q1

REPORT INFORMATION
  Report Type: 
  Country: None (occurrence: None)
  Receive Date: 20100310
  Receipt Date: 20100305
  Transmission Date: 20100710
  Serious: Yes (Other)
  Sender: FDA-Public Use
  Company Number: A0849203A

PATIENT
  Age: 37 Year
  Sex: Female

DRUGS (11)
  1. WELLBUTRIN SR [Suspect]
     Indication: DRUG USE FOR UNKNOWN INDICATION
     Dosage: 150MG PER DAY
     Route: 048
  2. WELLBUTRIN SR [Suspect]
     Dosage: 150MG TWICE PER DAY
     Route: 048
  3. CIPRALEX [Suspect]
     Indication: DRUG USE FOR UNKNOWN INDICATION
     Dosage: 10MG PER DAY
     Route: 048
  4. CIPRALEX [Suspect]
     Dosage: 20MG PER DAY
     Route: 048
  5. CIPRALEX [Suspect]
     Dosage: 30MG PER DAY
     Route: 048
  6. QUETIAPINE [Suspect]
     Indication: DRUG USE FOR UNKNOWN INDICATION
     Dosage: 200MG PER DAY
     Route: 048
  7. QUETIAPINE [Suspect]
     Dosage: 100MG PER DAY
     Route: 048
  8. QUETIAPINE [Suspect]
     Dosage: 50MG PER DAY
     Route: 048
  9. QUETIAPINE [Suspect]
     Dosage: 300MG PER DAY
     Route: 048
  10. PREMARIN [Concomitant]
  11. SLEEPING PILL [Concomitant]

REACTIONS (18)
  - APATHY [None]
  - CHEST DISCOMFORT [None]
  - CRYING [None]
  - DECREASED INTEREST [None]
  - DEPRESSED MOOD [None]
  - DISSOCIATION [None]
  - DIZZINESS [None]
  - DRUG INEFFECTIVE [None]
  - FATIGUE [None]
  - FEELING HOT [None]
  - HYPERHIDROSIS [None]
  - INAPPROPRIATE AFFECT [None]
  - INSOMNIA [None]
  - NEGATIVE THOUGHTS [None]
  - PRESYNCOPE [None]
  - SOMNOLENCE [None]
  - SUICIDAL IDEATION [None]
  - VOMITING [None]
